FAERS Safety Report 5269694-5 (Version None)
Quarter: 2007Q1

REPORT INFORMATION
  Report Type: 
  Country: None (occurrence: None)
  Receive Date: 20070313
  Receipt Date: 20070201
  Transmission Date: 20070707
  Serious: Yes (Hospitalization)
  Sender: FDA-Public Use
  Company Number: 2007-155345-NL

PATIENT
  Age: 32 Year
  Sex: Female

DRUGS (2)
  1. ETONOGESTREL [Suspect]
     Indication: CONTRACEPTION
     Dosage: DF SUBCUTANEOUS
     Route: 058
  2. METFORMIN [Concomitant]

REACTIONS (2)
  - INSOMNIA [None]
  - VAGINAL HAEMORRHAGE [None]
